FAERS Safety Report 19107449 (Version 1)
Quarter: 2021Q2

REPORT INFORMATION
  Report Type: Spontaneous
  Country: US (occurrence: US)
  Receive Date: 20210408
  Receipt Date: 20210408
  Transmission Date: 20210717
  Serious: No
  Sender: FDA-Public Use
  Company Number: None

PATIENT
  Age: 46 Year
  Sex: Female
  Weight: 48 kg

DRUGS (1)
  1. LASMIDITAN(LASMIDITAN 100MG TAB) [Suspect]
     Active Substance: LASMIDITAN
     Indication: MIGRAINE
     Dosage: ?          OTHER FREQUENCY:PRN;?
     Route: 048
     Dates: start: 20201020, end: 20210112

REACTIONS (1)
  - Sedation [None]

NARRATIVE: CASE EVENT DATE: 20210112
